FAERS Safety Report 15584113 (Version 2)
Quarter: 2018Q4

REPORT INFORMATION
  Report Type: Spontaneous
  Country: US (occurrence: US)
  Receive Date: 20181104
  Receipt Date: 20181105
  Transmission Date: 20190205
  Serious: No
  Sender: FDA-Public Use
  Company Number: US-009507513-1811USA000401

PATIENT
  Sex: Female

DRUGS (2)
  1. GANIRELIX ACETATE INJECTION [Suspect]
     Active Substance: GANIRELIX ACETATE
     Dosage: 250 MILLIGRAM, QD
     Route: 058
  2. PROGESTERONE. [Suspect]
     Active Substance: PROGESTERONE

REACTIONS (3)
  - Peripheral swelling [Unknown]
  - Injection site hypersensitivity [Unknown]
  - Injection site movement impairment [Unknown]
